FAERS Safety Report 5842810-X (Version None)
Quarter: 2008Q3

REPORT INFORMATION
  Report Type: 
  Country: None (occurrence: None)
  Receive Date: 20080811
  Receipt Date: 20080731
  Transmission Date: 20090109
  Serious: Yes (Other)
  Sender: FDA-Public Use
  Company Number: CIP08001426

PATIENT
  Age: 70 Year
  Sex: Female

DRUGS (6)
  1. ACTONEL [Suspect]
     Dosage: 35 MG ONCE WEEKLY, ORAL
     Route: 048
     Dates: start: 20070101, end: 20080201
  2. CALCIUM (CALCIUM) [Concomitant]
  3. MICARDIS [Concomitant]
  4. ELAVIL (AMITRIIPTYLINE HYDROCHLORIDE) [Concomitant]
  5. VYTORIN [Concomitant]
  6. ALLEGRA [Concomitant]

REACTIONS (3)
  - GINGIVAL ULCERATION [None]
  - IMPAIRED HEALING [None]
  - TOOTH EXTRACTION [None]
